FAERS Safety Report 8882474 (Version 3)
Quarter: 2012Q4

REPORT INFORMATION
  Report Type: 
  Country: US (occurrence: US)
  Receive Date: 20121102
  Receipt Date: 20121218
  Transmission Date: 20130627
  Serious: Yes (Death, Hospitalization, Other)
  Sender: FDA-Public Use
  Company Number: US-AMGEN-USASP2012068273

PATIENT
  Age: 43 Year
  Sex: Female
  Weight: 73.92 kg

DRUGS (8)
  1. VECTIBIX [Suspect]
     Indication: COLORECTAL CANCER METASTATIC
     Dosage: 400 mg, every 14 days
     Route: 042
     Dates: start: 20120927, end: 20121011
  2. FENTANYL [Concomitant]
     Indication: PAIN
     Dosage: 250 mug, every 3 days
  3. FENTANYL [Concomitant]
     Dosage: 50 mg, UNK
  4. FENTANYL [Concomitant]
     Dosage: 75 mug, Q72H
  5. ONDANSETRON [Concomitant]
     Indication: NAUSEA
     Dosage: 8 mg, q12H, PRN
     Route: 048
  6. PROCHLORPERAZINE [Concomitant]
     Indication: NAUSEA
     Dosage: 10 mg, UNK
     Route: 048
  7. LOMOTIL [Concomitant]
     Indication: DIARRHOEA
     Dosage: 2.5 mg, prn
     Route: 048
  8. CALCIUM GLUCONATE [Concomitant]
     Dosage: UNK
     Route: 042

REACTIONS (22)
  - Acute respiratory distress syndrome [Fatal]
  - Pneumonitis [Unknown]
  - Pulmonary toxicity [Not Recovered/Not Resolved]
  - Hypoxia [Not Recovered/Not Resolved]
  - Lung infiltration [Unknown]
  - Pleural effusion [Unknown]
  - Pulmonary fibrosis [Unknown]
  - Pericardial effusion [Unknown]
  - Metastases to skin [Unknown]
  - Myocardial infarction [Unknown]
  - Diastolic dysfunction [Unknown]
  - Hypokalaemia [Recovering/Resolving]
  - Hypomagnesaemia [Recovering/Resolving]
  - Hypocalcaemia [Unknown]
  - Supraventricular extrasystoles [Unknown]
  - Chest pain [Unknown]
  - Musculoskeletal pain [Unknown]
  - Arthralgia [Unknown]
  - Asthenia [Unknown]
  - Pain [Unknown]
  - Anxiety [Unknown]
  - Diarrhoea [Unknown]
